FAERS Safety Report 4630636-4 (Version None)
Quarter: 2005Q2

REPORT INFORMATION
  Report Type: 
  Country: None (occurrence: None)
  Receive Date: 20050406
  Receipt Date: 20050325
  Transmission Date: 20051028
  Serious: Yes (Hospitalization, Other)
  Sender: FDA-Public Use
  Company Number: KII-2005-0015591

PATIENT
  Age: 38 Year
  Sex: Female

DRUGS (7)
  1. OXYCONTIN [Suspect]
     Indication: DRUG USE FOR UNKNOWN INDICATION
     Dosage: SEE TEXT, NASAL
     Route: 045
  2. BENZODIAZEPINE DERIVATIVES ( ) [Suspect]
     Indication: DRUG USE FOR UNKNOWN INDICATION
     Dosage: SEE TEXT, NASAL
     Route: 045
  3. ACETAMINOPHEN AND HYDROCODONE BITARTRATE [Suspect]
     Indication: DRUG USE FOR UNKNOWN INDICATION
     Dosage: SEE TEXT, NASAL
     Route: 045
  4. ACETAMINOPHEN [Suspect]
     Indication: DRUG USE FOR UNKNOWN INDICATION
     Dosage: SEE TEXT
  5. ASPIRIN [Suspect]
     Indication: DRUG USE FOR UNKNOWN INDICATION
  6. COCAINE (COCAINE) [Suspect]
     Indication: DRUG USE FOR UNKNOWN INDICATION
  7. TETRAHYDROCANNABINOL (TETRAHYDROCANNABINOL) [Suspect]
     Indication: DRUG USE FOR UNKNOWN INDICATION

REACTIONS (8)
  - BODY TEMPERATURE INCREASED [None]
  - DRUG SCREEN POSITIVE [None]
  - NAUSEA [None]
  - POLYSUBSTANCE ABUSE [None]
  - RESTLESSNESS [None]
  - SOMNOLENCE [None]
  - SUICIDAL IDEATION [None]
  - VOMITING [None]
